FAERS Safety Report 9601637 (Version 1)
Quarter: 2013Q4

REPORT INFORMATION
  Report Type: Spontaneous
  Country: US (occurrence: US)
  Receive Date: 20131007
  Receipt Date: 20131007
  Transmission Date: 20140711
  Serious: Yes (Other)
  Sender: FDA-Public Use
  Company Number: US-BRISTOL-MYERS SQUIBB COMPANY-19448034

PATIENT
  Age: 74 Year
  Sex: Female
  Weight: 99.77 kg

DRUGS (1)
  1. COUMADIN [Suspect]
     Indication: TRANSIENT ISCHAEMIC ATTACK
     Dosage: USING ON AND OFF FOR 9YRS

REACTIONS (1)
  - Neoplasm [Not Recovered/Not Resolved]
